FAERS Safety Report 25236916 (Version 1)
Quarter: 2025Q2

REPORT INFORMATION
  Report Type: Spontaneous
  Country: US (occurrence: US)
  Receive Date: 20250424
  Receipt Date: 20250424
  Transmission Date: 20250716
  Serious: No
  Sender: MERCK SHARP & DOHME LLC
  Company Number: US-009507513-2279489

PATIENT
  Age: 78 Year
  Sex: Female

DRUGS (11)
  1. JANUVIA [Suspect]
     Active Substance: SITAGLIPTIN PHOSPHATE
     Indication: Type 2 diabetes mellitus
     Dosage: STRENGTH: 100 MG
     Route: 048
     Dates: end: 2025
  2. JARDIANCE [Suspect]
     Active Substance: EMPAGLIFLOZIN
  3. ACCETAMINOPHU [Concomitant]
  4. ALBUTEROL [Concomitant]
     Active Substance: ALBUTEROL
  5. ATORVASTATIN [Concomitant]
     Active Substance: ATORVASTATIN
  6. AZITHOMYCIN [Concomitant]
  7. FLUCANZOLE [Concomitant]
  8. LOSARATAN [Concomitant]
  9. TRUELUS [Concomitant]
  10. ONVANSETON [Concomitant]
  11. INSULIN NOS [Concomitant]
     Active Substance: INSULIN NOS

REACTIONS (3)
  - Adverse event [Not Recovered/Not Resolved]
  - Malaise [Not Recovered/Not Resolved]
  - Product dose omission issue [Unknown]

NARRATIVE: CASE EVENT DATE: 20250401
